FAERS Safety Report 17579240 (Version 1)
Quarter: 2020Q1

REPORT INFORMATION
  Report Type: Spontaneous
  Country: FR (occurrence: FR)
  Receive Date: 20200325
  Receipt Date: 20200325
  Transmission Date: 20200409
  Serious: Yes (Life-Threatening)
  Sender: FDA-Public Use
  Company Number: FR-CHEPLA-C20201029

PATIENT
  Age: 1 Year
  Sex: Male
  Weight: 10 kg

DRUGS (4)
  1. ZOPHREN [Concomitant]
     Active Substance: ONDANSETRON
  2. PLITICAN [Concomitant]
     Active Substance: ALIZAPRIDE HYDROCHLORIDE
  3. ETOPOPHOS [Suspect]
     Active Substance: ETOPOSIDE PHOSPHATE
     Indication: NEUROBLASTOMA
     Dosage: 150 MG/M2 OR 66 MG FROM D1 TO D3
     Route: 041
     Dates: start: 20200122, end: 20200124
  4. CARBOPLATINE ACCORD 10 MG/ML, SOLUTION POUR PERFUSION [Suspect]
     Active Substance: CARBOPLATIN
     Indication: NEUROBLASTOMA
     Dosage: 200MG/M2 OR 88 MG/D FROM D1 TO D3
     Route: 041
     Dates: start: 20200122, end: 20200124

REACTIONS (9)
  - Bone marrow failure [Recovering/Resolving]
  - Herpes virus infection [Unknown]
  - Mouth haemorrhage [Recovering/Resolving]
  - Neutropenia [Unknown]
  - Thrombocytopenia [Recovering/Resolving]
  - Anaemia [Unknown]
  - Product use in unapproved indication [Unknown]
  - Acute respiratory distress syndrome [Recovering/Resolving]
  - Mucosal inflammation [Recovering/Resolving]

NARRATIVE: CASE EVENT DATE: 20200126
